FAERS Safety Report 6800411-0 (Version None)
Quarter: 2010Q2

REPORT INFORMATION
  Report Type: 
  Country: None (occurrence: None)
  Receive Date: 20100629
  Receipt Date: 20100621
  Transmission Date: 20101027
  Serious: Yes (Hospitalization)
  Sender: FDA-Public Use
  Company Number: US-BIOGENIDEC-2010BI006600

PATIENT
  Age: 47 Year
  Sex: Male

DRUGS (8)
  1. TYSABRI [Suspect]
     Indication: MULTIPLE SCLEROSIS
     Route: 042
     Dates: start: 20090514, end: 20091201
  2. TYSABRI [Suspect]
     Route: 042
     Dates: start: 20100329
  3. AMLODIPINE [Concomitant]
  4. NITROGLYCERIN [Concomitant]
  5. VENLAFAXINE [Concomitant]
  6. GABAPENTIN [Concomitant]
  7. LAMOTRIGINE [Concomitant]
  8. METHOCARBAMOL [Concomitant]

REACTIONS (4)
  - CHEST PAIN [None]
  - DYSPNOEA [None]
  - HEART DISEASE CONGENITAL [None]
  - SYNCOPE [None]
